FAERS Safety Report 12875642 (Version 1)
Quarter: 2016Q4

REPORT INFORMATION
  Report Type: Spontaneous
  Country: US (occurrence: US)
  Receive Date: 20161024
  Receipt Date: 20161024
  Transmission Date: 20170207
  Serious: No
  Sender: FDA-Public Use
  Company Number: US-BAYER-2016-196388

PATIENT
  Age: 16 Year
  Sex: Female

DRUGS (4)
  1. ADVIL [Suspect]
     Active Substance: IBUPROFEN
     Indication: HEADACHE
  2. ALEVE [Suspect]
     Active Substance: NAPROXEN SODIUM
     Indication: HEADACHE
     Dosage: UNK
  3. ALEVE [Suspect]
     Active Substance: NAPROXEN SODIUM
     Indication: PAIN
     Dosage: 1 DF, UNK
     Route: 048
     Dates: start: 20161009, end: 20161009
  4. ADVIL [Suspect]
     Active Substance: IBUPROFEN
     Indication: PAIN
     Route: 048

REACTIONS (1)
  - Intentional product misuse [None]

NARRATIVE: CASE EVENT DATE: 20161009
